FAERS Safety Report 21047157 (Version 1)
Quarter: 2022Q3

REPORT INFORMATION
  Report Type: Spontaneous
  Country: US (occurrence: None)
  Receive Date: 20220705
  Receipt Date: 20220705
  Transmission Date: 20221027
  Serious: Yes (Death)
  Sender: FDA-Public Use
  Company Number: None

PATIENT
  Age: 55 Year
  Sex: Female

DRUGS (2)
  1. MYCOPHENOLIC ACID [Suspect]
     Active Substance: MYCOPHENOLIC ACID
     Dosage: 1 GRAM BID ORAL??
     Route: 048
     Dates: start: 20211231, end: 20220630
  2. TACROLIMUS [Suspect]
     Active Substance: TACROLIMUS
     Dosage: 4 MG BID ORAL?
     Route: 048
     Dates: start: 20211231, end: 20220630

REACTIONS (1)
  - Death [None]

NARRATIVE: CASE EVENT DATE: 20220630
